FAERS Safety Report 9913345 (Version 1)
Quarter: 2014Q1

REPORT INFORMATION
  Report Type: Spontaneous
  Country: US (occurrence: None)
  Receive Date: 20140218
  Receipt Date: 20140218
  Transmission Date: 20141002
  Serious: Yes (Hospitalization)
  Sender: FDA-Public Use
  Company Number: None

PATIENT
  Age: 78 Year
  Sex: Male
  Weight: 92 kg

DRUGS (18)
  1. APIXABAN [Suspect]
     Indication: ARTERIAL THROMBOSIS
     Route: 048
     Dates: start: 20131120, end: 20140128
  2. APIXABAN [Suspect]
     Indication: VENOUS THROMBOSIS
     Route: 048
     Dates: start: 20131120, end: 20140128
  3. ACETAMINOPHEN [Concomitant]
  4. ORAL TABLET [Concomitant]
  5. ASPIRIN [Concomitant]
  6. BUDESONIDE [Concomitant]
  7. CYANOCOBALAMIN [Concomitant]
  8. DICLOFENAC SODIUM [Concomitant]
  9. FLUTICASONE [Concomitant]
  10. HYDROCORTISONE [Concomitant]
  11. HYDROMORPHONE [Concomitant]
  12. LEVOTHYROXINE [Concomitant]
  13. LIDOCAINE [Concomitant]
  14. LIPASE-PROTEASE-AMYLASE [Concomitant]
  15. LOSARTAN [Concomitant]
  16. MORPHINE ER [Concomitant]
  17. NEEDLE, DISP [Concomitant]
  18. NITROGLYCERIN [Concomitant]

REACTIONS (5)
  - Hypoxia [None]
  - Cardiac disorder [None]
  - Lung disorder [None]
  - Staphylococcus test positive [None]
  - Alveolitis allergic [None]
